FAERS Safety Report 15609357 (Version 2)
Quarter: 2018Q4

REPORT INFORMATION
  Report Type: Report from Study
  Country: US (occurrence: US)
  Receive Date: 20181112
  Receipt Date: 20181231
  Transmission Date: 20190205
  Serious: Yes (Hospitalization, Other)
  Sender: FDA-Public Use
  Company Number: US-BRISTOL-MYERS SQUIBB COMPANY-BMS-2018-055754

PATIENT
  Age: 62 Year
  Sex: Male
  Weight: 122.4 kg

DRUGS (5)
  1. OXYCODONE                          /00045603/ [Concomitant]
     Active Substance: OXYCODONE
     Indication: PAIN
     Dosage: UNK, QID
     Route: 065
  2. MORPHINE [Concomitant]
     Active Substance: MORPHINE
     Indication: PRODUCT USED FOR UNKNOWN INDICATION
     Dosage: 60 MG, TID
     Route: 065
  3. NIVOLUMAB [Suspect]
     Active Substance: NIVOLUMAB
     Indication: PRODUCT USED FOR UNKNOWN INDICATION
     Dosage: 480 MG, Q4WK
     Route: 042
     Dates: start: 20180910
  4. GABAPENTIN. [Concomitant]
     Active Substance: GABAPENTIN
     Indication: PRODUCT USED FOR UNKNOWN INDICATION
     Route: 065
  5. NIVOLUMAB [Suspect]
     Active Substance: NIVOLUMAB
     Indication: RENAL CELL CARCINOMA
     Dosage: 480 MG, Q2WK
     Route: 042

REACTIONS (30)
  - Asthenia [Unknown]
  - Abdominal pain [Not Recovered/Not Resolved]
  - Muscular weakness [Unknown]
  - Renal failure [Unknown]
  - Wheezing [Unknown]
  - Hyperphagia [Not Recovered/Not Resolved]
  - Musculoskeletal pain [Unknown]
  - Limb injury [Unknown]
  - Malignant neoplasm progression [Not Recovered/Not Resolved]
  - Dysphonia [Unknown]
  - Pelvic pain [Unknown]
  - Dehydration [Unknown]
  - Fatigue [Not Recovered/Not Resolved]
  - Back pain [Unknown]
  - Bone pain [Unknown]
  - Presyncope [Recovering/Resolving]
  - Dementia [Unknown]
  - Dyspnoea [Unknown]
  - Blister [Unknown]
  - Weight increased [Not Recovered/Not Resolved]
  - Peripheral swelling [Unknown]
  - Dry skin [Unknown]
  - Skin disorder [Unknown]
  - Arthralgia [Unknown]
  - Chest discomfort [Unknown]
  - Skin injury [Unknown]
  - Skin atrophy [Unknown]
  - Haemorrhage [Unknown]
  - Vision blurred [Unknown]
  - Spinal pain [Unknown]

NARRATIVE: CASE EVENT DATE: 20181218
